FAERS Safety Report 24255032 (Version 1)
Quarter: 2024Q3

REPORT INFORMATION
  Report Type: Report from Study
  Country: US (occurrence: US)
  Receive Date: 20240827
  Receipt Date: 20240827
  Transmission Date: 20241017
  Serious: Yes (Hospitalization, Other)
  Sender: JOHNSON AND JOHNSON
  Company Number: US-JNJFOC-20240848032

PATIENT

DRUGS (1)
  1. TECVAYLI [Suspect]
     Active Substance: TECLISTAMAB-CQYV
     Indication: Product used for unknown indication
     Dosage: FIRST STEP UP DOSE
     Route: 065
     Dates: start: 20240817

REACTIONS (3)
  - Cerebrovascular accident [Unknown]
  - Hospitalisation [Unknown]
  - General physical condition abnormal [Unknown]
